FAERS Safety Report 19114684 (Version 1)
Quarter: 2021Q2

REPORT INFORMATION
  Report Type: Spontaneous
  Country: US (occurrence: US)
  Receive Date: 20210408
  Receipt Date: 20210408
  Transmission Date: 20210717
  Serious: No
  Sender: FDA-Public Use
  Company Number: US-PERRIGO-20US004046

PATIENT
  Age: 70 Year
  Sex: Female
  Weight: 82.54 kg

DRUGS (3)
  1. VITAMINS NOS [Concomitant]
     Active Substance: VITAMINS
     Dosage: UNKNOWN, UNKNOWN
     Route: 048
  2. PSEUDOEPHEDRINE HYDROCHLORIDE. [Suspect]
     Active Substance: PSEUDOEPHEDRINE HYDROCHLORIDE
     Indication: UPPER-AIRWAY COUGH SYNDROME
     Dosage: 120 MG, QD
     Route: 048
     Dates: start: 20200309, end: 20200310
  3. PSEUDOEPHEDRINE HYDROCHLORIDE. [Suspect]
     Active Substance: PSEUDOEPHEDRINE HYDROCHLORIDE
     Indication: NASOPHARYNGITIS
     Dosage: 120 MG, TWICE IN 2 HOURS
     Route: 048
     Dates: start: 20200311, end: 20200311

REACTIONS (6)
  - Expired product administered [Recovered/Resolved]
  - Therapeutic response unexpected [Unknown]
  - Fatigue [Unknown]
  - Extra dose administered [Recovered/Resolved]
  - Nervousness [Unknown]
  - Drug effective for unapproved indication [Recovered/Resolved]

NARRATIVE: CASE EVENT DATE: 20200309
